FAERS Safety Report 20047775 (Version 1)
Quarter: 2021Q4

REPORT INFORMATION
  Report Type: Spontaneous
  Country: US (occurrence: US)
  Receive Date: 20211109
  Receipt Date: 20211109
  Transmission Date: 20220304
  Serious: No
  Sender: FDA-Public Use
  Company Number: US-CELGENE-USA-20211008554

PATIENT
  Age: 67 Year
  Sex: Male
  Weight: 76.272 kg

DRUGS (1)
  1. POMALYST [Suspect]
     Active Substance: POMALIDOMIDE
     Indication: Plasma cell myeloma
     Dosage: 2 MILLIGRAM
     Route: 048
     Dates: start: 20211026, end: 20211027

REACTIONS (5)
  - Oropharyngeal pain [Unknown]
  - Back pain [Unknown]
  - Rash [Unknown]
  - Pruritus [Unknown]
  - Platelet count decreased [Unknown]

NARRATIVE: CASE EVENT DATE: 20211026
